FAERS Safety Report 5706503-1 (Version None)
Quarter: 2008Q2

REPORT INFORMATION
  Report Type: 
  Country: None (occurrence: None)
  Receive Date: 20080414
  Receipt Date: 20080409
  Transmission Date: 20081010
  Serious: Yes (Hospitalization)
  Sender: FDA-Public Use
  Company Number: 2008SP005445

PATIENT
  Age: 56 Year
  Sex: Female

DRUGS (2)
  1. PEG-INTRON         (PEGINTERFERON ALFA-2B) [Suspect]
     Indication: HEPATITIS
     Dosage: SC
     Route: 058
     Dates: start: 20070914, end: 20071109
  2. RIBASPHERE [Suspect]
     Indication: HEPATITIS
     Dosage: PO
     Route: 048
     Dates: start: 20070914, end: 20071109

REACTIONS (5)
  - ABASIA [None]
  - DEHYDRATION [None]
  - FLUID INTAKE REDUCED [None]
  - MALAISE [None]
  - ORAL INTAKE REDUCED [None]
